FAERS Safety Report 11203538 (Version 3)
Quarter: 2021Q4

REPORT INFORMATION
  Report Type: Spontaneous
  Country: FR (occurrence: FR)
  Receive Date: 20150619
  Receipt Date: 20211220
  Transmission Date: 20220303
  Serious: Yes (Congenital Anomaly, Other)
  Sender: FDA-Public Use
  Company Number: FR-ABBVIE-15P-056-1412138-00

PATIENT
  Age: 9 Year
  Sex: Male

DRUGS (1)
  1. VALPROATE SODIUM [Suspect]
     Active Substance: VALPROATE SODIUM
     Indication: Maternal exposure timing unspecified
     Route: 064

REACTIONS (13)
  - Autism spectrum disorder [Not Recovered/Not Resolved]
  - Foetal exposure during pregnancy [Unknown]
  - Dysmorphism [Unknown]
  - Auditory disorder [Unknown]
  - Foot deformity [Unknown]
  - Enuresis [Unknown]
  - Respiratory distress [Unknown]
  - Sensory processing disorder [Unknown]
  - Tooth malformation [Unknown]
  - Limb malformation [Unknown]
  - Developmental delay [Unknown]
  - Ligament laxity [Unknown]
  - Scoliosis [Unknown]

NARRATIVE: CASE EVENT DATE: 20150101
